FAERS Safety Report 4398657-7 (Version None)
Quarter: 2004Q3

REPORT INFORMATION
  Report Type: 
  Country: None (occurrence: None)
  Receive Date: 20040712
  Receipt Date: 20040630
  Transmission Date: 20050211
  Serious: Yes (Hospitalization)
  Sender: FDA-Public Use
  Company Number: 2004PK01141

PATIENT
  Age: 79 Year
  Sex: Male

DRUGS (2)
  1. SEROQUEL [Suspect]
  2. REMINYL [Suspect]

REACTIONS (2)
  - BRADYCARDIA [None]
  - DRUG INTERACTION [None]
